FAERS Safety Report 17559651 (Version 1)
Quarter: 2020Q1

REPORT INFORMATION
  Report Type: Spontaneous
  Country: US (occurrence: US)
  Receive Date: 20200319
  Receipt Date: 20200319
  Transmission Date: 20200409
  Serious: No
  Sender: FDA-Public Use
  Company Number: US-SA-2020SA066376

PATIENT
  Age: 15 Year
  Sex: Female

DRUGS (1)
  1. DUPIXENT [Suspect]
     Active Substance: DUPILUMAB
     Indication: ECZEMA
     Dosage: 1 DF, 1X
     Dates: start: 20200226

REACTIONS (7)
  - Dyspnoea [Unknown]
  - Malaise [Unknown]
  - Erythema [Unknown]
  - Lower limb fracture [Unknown]
  - Dizziness [Unknown]
  - Flushing [Unknown]
  - Upper limb fracture [Unknown]
